FAERS Safety Report 5217751-1 (Version None)
Quarter: 2007Q1

REPORT INFORMATION
  Report Type: 
  Country: None (occurrence: None)
  Receive Date: 20061130
  Receipt Date: 20060927
  Transmission Date: 20070707
  Serious: Yes (Hospitalization)
  Sender: FDA-Public Use
  Company Number: US200608004337

PATIENT
  Age: 71 Year
  Sex: Female
  Weight: 102 kg

DRUGS (2)
  1. ZYPREXA [Suspect]
     Dosage: 5 MG,
     Dates: start: 19980101
  2. NEFAZODONE HCL [Concomitant]

REACTIONS (4)
  - CEREBROVASCULAR ACCIDENT [None]
  - DIABETES MELLITUS [None]
  - METABOLIC DISORDER [None]
  - OBESITY [None]
